FAERS Safety Report 8345319-7 (Version None)
Quarter: 2012Q2

REPORT INFORMATION
  Report Type: 
  Country: None (occurrence: None)
  Receive Date: 20120402
  Receipt Date: 20110606
  Transmission Date: 20120825
  Serious: Yes (Other)
  Sender: FDA-Public Use
  Company Number: 277786USA

PATIENT
  Sex: Male

DRUGS (1)
  1. AMPHETAMINE AND DEXTROAMPHETAMINE SALTS [Suspect]
     Dosage: ORAL
     Route: 048

REACTIONS (5)
  - SOMATOFORM DISORDER [None]
  - FEELING ABNORMAL [None]
  - PSYCHOTIC BEHAVIOUR [None]
  - PSYCHIATRIC SYMPTOM [None]
  - PSYCHOTIC DISORDER [None]
